FAERS Safety Report 8226087-6 (Version None)
Quarter: 2012Q1

REPORT INFORMATION
  Report Type: 
  Country: None (occurrence: None)
  Receive Date: 20120321
  Receipt Date: 20120319
  Transmission Date: 20120608
  Serious: Yes (Hospitalization)
  Sender: FDA-Public Use
  Company Number: US-PFIZER INC-2012035798

PATIENT
  Sex: Female
  Weight: 58.503 kg

DRUGS (12)
  1. XANAX [Concomitant]
     Dosage: UNK
  2. NIFEDIPINE [Suspect]
     Dosage: 30 MG, 1X/DAY
     Route: 048
     Dates: start: 20120101, end: 20120101
  3. PROCARDIA XL [Concomitant]
     Indication: HYPERTENSION
     Dosage: 30 MG, DAILY
     Dates: start: 19900101, end: 20111101
  4. DIOVAN HCT [Concomitant]
     Indication: HYPERTENSION
     Dosage: UNK
  5. DIOVAN [Concomitant]
     Indication: HYPERTENSION
     Dosage: 160 MG, 1X/DAY
  6. PROPRANOLOL [Concomitant]
     Dosage: UNK
  7. NIFEDIPINE [Suspect]
     Dosage: 30 MG, UNK
     Route: 048
     Dates: start: 20120206, end: 20120210
  8. NIFEDIPINE [Suspect]
     Indication: HYPERTENSION
     Dosage: 30 MG, UNK
     Route: 048
     Dates: start: 20111101, end: 20111201
  9. PREMARIN [Concomitant]
     Dosage: 0.3 MG, 1X/DAY
  10. NEXIUM [Concomitant]
     Dosage: 40 MG, 1X/DAY
  11. SYNTHROID [Concomitant]
     Indication: HYPOTHYROIDISM
     Dosage: 100 UG, 1X/DAY
  12. SYNTHROID [Concomitant]
     Indication: HYPERTHYROIDISM
     Dosage: 100 UG, UNK

REACTIONS (5)
  - NERVOUSNESS [None]
  - BLOOD PRESSURE INCREASED [None]
  - PALPITATIONS [None]
  - CHEST PAIN [None]
  - MALAISE [None]
